APPROVED DRUG PRODUCT: HYDROCODONE BITARTRATE AND ACETAMINOPHEN
Active Ingredient: ACETAMINOPHEN; HYDROCODONE BITARTRATE
Strength: 300MG/15ML;10MG/15ML
Dosage Form/Route: SOLUTION;ORAL
Application: A040881 | Product #001
Applicant: MIKART LLC
Approved: Feb 25, 2010 | RLD: No | RS: Yes | Type: RX